FAERS Safety Report 18956750 (Version 1)
Quarter: 2021Q1

REPORT INFORMATION
  Report Type: Other
  Country: AT (occurrence: AT)
  Receive Date: 20210302
  Receipt Date: 20210302
  Transmission Date: 20210420
  Serious: Yes (Other)
  Sender: FDA-Public Use
  Company Number: AT-CELLTRION INC.-2021AT002328

PATIENT

DRUGS (2)
  1. TOCILIZUMAB. [Suspect]
     Active Substance: TOCILIZUMAB
     Indication: ENCEPHALITIS
     Dosage: 8 MG/KG EVERY 0.25 WEEK
     Route: 065
  2. RITUXIMAB (UNKNOWN) [Suspect]
     Active Substance: RITUXIMAB
     Indication: ENCEPHALITIS
     Dosage: 5 TIMES, DISCONTINUED
     Route: 065
     Dates: end: 202003

REACTIONS (3)
  - Intentional product use issue [Unknown]
  - Status epilepticus [Unknown]
  - Off label use [Unknown]
